FAERS Safety Report 14149151 (Version 1)
Quarter: 2017Q4

REPORT INFORMATION
  Report Type: Spontaneous
  Country: US (occurrence: None)
  Receive Date: 20171101
  Receipt Date: 20171101
  Transmission Date: 20180321
  Serious: Yes (Other)
  Sender: FDA-Public Use
  Company Number: None

PATIENT
  Age: 59 Year
  Sex: Female
  Weight: 111.13 kg

DRUGS (20)
  1. MONTELUKAST [Concomitant]
     Active Substance: MONTELUKAST SODIUM
  2. METFORMIN [Suspect]
     Active Substance: METFORMIN HYDROCHLORIDE
     Indication: DIABETES MELLITUS
     Dosage: 500MG  180  TWICE BY MOUTH
     Route: 048
     Dates: start: 20170724, end: 20170729
  3. IPTRATROPIUM [Concomitant]
  4. PROAIR HFA [Concomitant]
     Active Substance: ALBUTEROL SULFATE
  5. OXYCODONE [Concomitant]
     Active Substance: OXYCODONE
  6. IBUPROFEN. [Concomitant]
     Active Substance: IBUPROFEN
  7. GABAPENTIN. [Concomitant]
     Active Substance: GABAPENTIN
  8. ESCITALOPRAM [Concomitant]
     Active Substance: ESCITALOPRAM OXALATE
  9. OMEPRAZOLE. [Concomitant]
     Active Substance: OMEPRAZOLE
  10. GABAPENTIN. [Concomitant]
     Active Substance: GABAPENTIN
  11. CARVEDILOL. [Concomitant]
     Active Substance: CARVEDILOL
  12. OXYCONTIN [Concomitant]
     Active Substance: OXYCODONE HYDROCHLORIDE
  13. TRAZODONE [Concomitant]
     Active Substance: TRAZODONE HYDROCHLORIDE
  14. CLOBETASOL [Concomitant]
     Active Substance: CLOBETASOL
  15. DALIRESP [Concomitant]
     Active Substance: ROFLUMILAST
  16. SIMVASTATIN. [Concomitant]
     Active Substance: SIMVASTATIN
  17. DULOXETINE. [Concomitant]
     Active Substance: DULOXETINE
  18. ALB [Concomitant]
  19. LISINOPRIL. [Concomitant]
     Active Substance: LISINOPRIL
  20. LINZESS [Concomitant]
     Active Substance: LINACLOTIDE

REACTIONS (1)
  - Rash [None]

NARRATIVE: CASE EVENT DATE: 20170829
